FAERS Safety Report 17894182 (Version 6)
Quarter: 2020Q3

REPORT INFORMATION
  Report Type: Spontaneous
  Country: US (occurrence: US)
  Receive Date: 20200615
  Receipt Date: 20200909
  Transmission Date: 20201103
  Serious: Yes (Hospitalization, Other)
  Sender: FDA-Public Use
  Company Number: US-GLAXOSMITHKLINE-US2020AMR098650

PATIENT
  Sex: Female

DRUGS (3)
  1. FERROUS SULFATE. [Concomitant]
     Active Substance: FERROUS SULFATE
     Indication: PRODUCT USED FOR UNKNOWN INDICATION
     Dosage: UNK
  2. ZEJULA [Suspect]
     Active Substance: NIRAPARIB
     Indication: OVARIAN CANCER
     Dosage: 300 MG, QD
     Route: 048
     Dates: start: 20200529
  3. ZEJULA [Suspect]
     Active Substance: NIRAPARIB
     Dosage: 2 DF, QD
     Route: 048
     Dates: start: 20200724

REACTIONS (12)
  - Pancytopenia [Recovered/Resolved]
  - Dizziness [Unknown]
  - Asthenia [Unknown]
  - Pyrexia [Recovered/Resolved]
  - Increased upper airway secretion [Unknown]
  - Dry mouth [Unknown]
  - Dysphagia [Unknown]
  - Chest pain [Unknown]
  - Sluggishness [Unknown]
  - Thrombocytopenia [Recovered/Resolved]
  - Nausea [Unknown]
  - Oropharyngeal discomfort [Unknown]
